FAERS Safety Report 11286234 (Version 1)
Quarter: 2015Q3

REPORT INFORMATION
  Report Type: Spontaneous
  Country: GB (occurrence: None)
  Receive Date: 20150717
  Receipt Date: 20150717
  Transmission Date: 20151125
  Serious: Yes (Hospitalization)
  Sender: FDA-Public Use
  Company Number: GB2015K4250SPO

PATIENT
  Age: 80 Year
  Sex: Female

DRUGS (9)
  1. LEVOTHYROXINE. [Concomitant]
     Active Substance: LEVOTHYROXINE
  2. ISOSORBIDE MONONITRATE (ISOSORBIDE) [Concomitant]
  3. LANSOPRAZOLE GENERIC (LANSOPRAZOLE) UNKNOWN [Suspect]
     Active Substance: LANSOPRAZOLE
     Indication: DYSPEPSIA
     Route: 048
     Dates: end: 20150623
  4. BISOPROLOL [Concomitant]
     Active Substance: BISOPROLOL
  5. ALVERINE [Concomitant]
     Active Substance: ALVERINE
  6. FUROSEMIDE (FRUSEMIDE) [Suspect]
     Active Substance: FUROSEMIDE
     Indication: CARDIAC FAILURE CHRONIC
     Route: 048
     Dates: end: 20150623
  7. EZETIMIBE. [Concomitant]
     Active Substance: EZETIMIBE
  8. NICORANDIL [Concomitant]
     Active Substance: NICORANDIL
  9. OLMESARTAN [Concomitant]
     Active Substance: OLMESARTAN

REACTIONS (4)
  - Lethargy [None]
  - Hypocalcaemia [None]
  - Hypomagnesaemia [None]
  - Paraesthesia [None]

NARRATIVE: CASE EVENT DATE: 20150620
